FAERS Safety Report 13046710 (Version 4)
Quarter: 2017Q2

REPORT INFORMATION
  Report Type: Report from Study
  Country: IT (occurrence: IT)
  Receive Date: 20161220
  Receipt Date: 20170417
  Transmission Date: 20170830
  Serious: Yes (Hospitalization)
  Sender: FDA-Public Use
  Company Number: IT-ROCHE-1866948

PATIENT
  Age: 51 Year
  Sex: Female
  Weight: 72 kg

DRUGS (17)
  1. TACHIPIRINA [Concomitant]
     Active Substance: ACETAMINOPHEN
     Route: 048
     Dates: start: 20161211, end: 20161212
  2. GABAPENTIN. [Concomitant]
     Active Substance: GABAPENTIN
     Indication: ABDOMINAL PAIN
     Route: 048
  3. XANAX [Concomitant]
     Active Substance: ALPRAZOLAM
     Indication: ANXIETY
     Route: 048
  4. COBIMETINIB [Suspect]
     Active Substance: COBIMETINIB
     Indication: COLORECTAL ADENOCARCINOMA
     Dosage: DATE OF MOST RECENT DOSE (60MG) PRIOR TO THE EVENT ONSET: 09/DEC/2016 (DAYS 1 TO 21 IN A 28-DAY CYCL
     Route: 048
     Dates: start: 20161103
  5. VASELINE OIL [Concomitant]
     Indication: CONSTIPATION
     Route: 048
     Dates: start: 20161211, end: 20161214
  6. MORFINE [Concomitant]
     Active Substance: MORPHINE
     Indication: ABDOMINAL PAIN
     Route: 048
     Dates: start: 20161210, end: 20161212
  7. ATEZOLIZUMAB [Suspect]
     Active Substance: ATEZOLIZUMAB
     Indication: COLORECTAL ADENOCARCINOMA
     Dosage: DATE OF MOST RECENT DOSE (840MG) PRIOR TO THE EVENT ONSET: 01/DEC/2016 WITH A START TIME OF 0955
     Route: 042
     Dates: start: 20161103
  8. TACHIPIRINA [Concomitant]
     Active Substance: ACETAMINOPHEN
     Indication: ABDOMINAL PAIN
     Route: 048
     Dates: end: 20161209
  9. MS CONTIN [Concomitant]
     Active Substance: MORPHINE SULFATE
     Indication: ABDOMINAL PAIN
     Route: 048
     Dates: start: 20161117, end: 20161209
  10. CALCIPARINA [Concomitant]
     Active Substance: HEPARIN CALCIUM
     Route: 058
     Dates: end: 20161209
  11. TWICE [Concomitant]
     Indication: ABDOMINAL PAIN
     Route: 048
     Dates: start: 20161212
  12. ENTACT [Concomitant]
     Active Substance: ESCITALOPRAM OXALATE
     Indication: DEPRESSION
     Route: 048
  13. ORAMORPH [Concomitant]
     Active Substance: MORPHINE SULFATE
     Indication: ABDOMINAL PAIN
     Route: 048
     Dates: start: 20161103, end: 20161116
  14. LANSOPRAZOLE. [Concomitant]
     Active Substance: LANSOPRAZOLE
     Indication: PROPHYLAXIS
     Route: 048
  15. PANTOPRAZOLE [Concomitant]
     Active Substance: PANTOPRAZOLE
     Route: 048
     Dates: start: 20161212
  16. PURSENNID [Concomitant]
     Active Substance: SENNOSIDES A AND B
     Indication: CONSTIPATION
     Route: 048
     Dates: start: 20161214, end: 20161214
  17. DUROGESIC [Concomitant]
     Active Substance: FENTANYL
     Indication: ABDOMINAL PAIN
     Route: 062
     Dates: start: 20161103

REACTIONS (1)
  - Anaemia [Not Recovered/Not Resolved]

NARRATIVE: CASE EVENT DATE: 20161209
